FAERS Safety Report 9972238 (Version 1)
Quarter: 2014Q1

REPORT INFORMATION
  Report Type: Spontaneous
  Country: GB (occurrence: None)
  Receive Date: 20140304
  Receipt Date: 20140304
  Transmission Date: 20141002
  Serious: Yes (Hospitalization)
  Sender: FDA-Public Use
  Company Number: GB-014847

PATIENT
  Age: 48 Year
  Sex: Male

DRUGS (3)
  1. DESMOPRESSIN ACETATE [Suspect]
     Indication: ENURESIS
  2. BENDROFLUMETHIAZIDE (BENDROFLUMETHIAZIDE) [Suspect]
     Indication: HYPERTENSION
  3. POTASSIUM [Concomitant]

REACTIONS (6)
  - Hyponatraemia [None]
  - Osmotic demyelination syndrome [None]
  - Cerebral infarction [None]
  - Coordination abnormal [None]
  - Amnesia [None]
  - Delirium [None]
